FAERS Safety Report 22981504 (Version 3)
Quarter: 2024Q2

REPORT INFORMATION
  Report Type: Spontaneous
  Country: US (occurrence: US)
  Receive Date: 20230925
  Receipt Date: 20240603
  Transmission Date: 20240715
  Serious: Yes (Other)
  Sender: FDA-Public Use
  Company Number: US-PFIZER INC-PV202300159479

PATIENT
  Age: 60 Year
  Sex: Female

DRUGS (2)
  1. CIBINQO [Suspect]
     Active Substance: ABROCITINIB
     Dosage: 100 MG, DAILY
     Route: 048
  2. CIBINQO [Suspect]
     Active Substance: ABROCITINIB
     Dosage: 100 MG, ALTERNATE DAY (ONE EVERY OTHER DAY)

REACTIONS (5)
  - Diabetes mellitus [Unknown]
  - Neoplasm malignant [Unknown]
  - Urinary tract disorder [Unknown]
  - Skin lesion [Recovered/Resolved]
  - Off label use [Unknown]
